FAERS Safety Report 6639150-8 (Version None)
Quarter: 2010Q1

REPORT INFORMATION
  Report Type: 
  Country: None (occurrence: None)
  Receive Date: 20100317
  Receipt Date: 20100317
  Transmission Date: 20100710
  Serious: Yes (Other)
  Sender: FDA-Public Use
  Company Number: US-ABBOTT-10P-163-0630880-00

PATIENT
  Sex: Female
  Weight: 54.48 kg

DRUGS (5)
  1. HUMIRA [Suspect]
     Indication: CROHN'S DISEASE
     Route: 058
     Dates: start: 20090301
  2. SYNTHROID [Concomitant]
     Indication: HYPOTHYROIDISM
     Dates: start: 19900101
  3. PRAVASTATIN [Concomitant]
     Indication: LOW DENSITY LIPOPROTEIN INCREASED
     Dates: start: 20100303
  4. GENERIC STOOL SOFTENER [Concomitant]
     Indication: CONSTIPATION
     Dates: start: 20090301
  5. CITRACAL [Concomitant]
     Indication: DRUG USE FOR UNKNOWN INDICATION

REACTIONS (7)
  - ALOPECIA [None]
  - BASAL CELL CARCINOMA [None]
  - CONSTIPATION [None]
  - LOW DENSITY LIPOPROTEIN INCREASED [None]
  - NASOPHARYNGITIS [None]
  - SKIN EXFOLIATION [None]
  - SYNOVIAL CYST [None]
